FAERS Safety Report 24024078 (Version 6)
Quarter: 2024Q3

REPORT INFORMATION
  Report Type: Report from Study
  Country: CN (occurrence: CN)
  Receive Date: 20240627
  Receipt Date: 20240710
  Transmission Date: 20241017
  Serious: No
  Sender: ROCHE
  Company Number: CN-ROCHE-3278473

PATIENT
  Age: 71 Year
  Sex: Female
  Weight: 51.0 kg

DRUGS (64)
  1. ALECTINIB [Suspect]
     Active Substance: ALECTINIB
     Indication: Non-small cell lung cancer metastatic
     Route: 048
     Dates: start: 20211217
  2. CEFDINIR [Concomitant]
     Active Substance: CEFDINIR
     Indication: Urinary tract infection
     Route: 048
     Dates: start: 20211220
  3. URSODIOL [Concomitant]
     Active Substance: URSODIOL
     Indication: Blood bilirubin increased
     Dosage: SUBSEQUENT DOSE 0.25 , TID ON 24/OCT/2022
     Route: 048
     Dates: start: 20220407, end: 2022
  4. URSODIOL [Concomitant]
     Active Substance: URSODIOL
     Route: 048
     Dates: start: 20230315
  5. URSODIOL [Concomitant]
     Active Substance: URSODIOL
     Route: 048
     Dates: start: 20230212
  6. ZOLEDRONIC ACID [Concomitant]
     Active Substance: ZOLEDRONIC ACID
     Indication: Metastases to bone
     Route: 050
     Dates: start: 20221022, end: 20221022
  7. VITAMIN C [Concomitant]
     Active Substance: ASCORBIC ACID
     Route: 050
     Dates: start: 20221120, end: 20221123
  8. VITAMIN C [Concomitant]
     Active Substance: ASCORBIC ACID
     Route: 050
     Dates: start: 20230111, end: 20230111
  9. VITAMIN C [Concomitant]
     Active Substance: ASCORBIC ACID
     Route: 050
     Dates: start: 20230211, end: 20230213
  10. VITAMIN C [Concomitant]
     Active Substance: ASCORBIC ACID
     Route: 050
     Dates: start: 20230311, end: 20230311
  11. VITAMIN C [Concomitant]
     Active Substance: ASCORBIC ACID
     Route: 042
     Dates: start: 20230406, end: 20230407
  12. VITAMIN C [Concomitant]
     Active Substance: ASCORBIC ACID
     Route: 042
     Dates: start: 20230505, end: 20230507
  13. VITAMIN C [Concomitant]
     Active Substance: ASCORBIC ACID
     Route: 042
     Dates: start: 20230630, end: 20230701
  14. VITAMIN C [Concomitant]
     Active Substance: ASCORBIC ACID
     Route: 042
     Dates: start: 20230816, end: 20230817
  15. VITAMIN C [Concomitant]
     Active Substance: ASCORBIC ACID
     Route: 042
     Dates: start: 20230211, end: 20230213
  16. VITAMIN C [Concomitant]
     Active Substance: ASCORBIC ACID
     Route: 050
     Dates: start: 20211220, end: 20211220
  17. VITAMIN B6 [Concomitant]
     Active Substance: PYRIDOXINE HYDROCHLORIDE
     Route: 050
     Dates: start: 20221120, end: 20221123
  18. VITAMIN B6 [Concomitant]
     Active Substance: PYRIDOXINE HYDROCHLORIDE
     Route: 050
     Dates: start: 20230111, end: 20230111
  19. VITAMIN B6 [Concomitant]
     Active Substance: PYRIDOXINE HYDROCHLORIDE
     Route: 050
     Dates: start: 20230211, end: 20230213
  20. VITAMIN B6 [Concomitant]
     Active Substance: PYRIDOXINE HYDROCHLORIDE
     Route: 050
     Dates: start: 20230311, end: 20230311
  21. VITAMIN B6 [Concomitant]
     Active Substance: PYRIDOXINE HYDROCHLORIDE
     Route: 042
     Dates: start: 20230211, end: 20230213
  22. VITAMIN B6 [Concomitant]
     Active Substance: PYRIDOXINE HYDROCHLORIDE
     Route: 042
     Dates: start: 20230406, end: 20230407
  23. VITAMIN B6 [Concomitant]
     Active Substance: PYRIDOXINE HYDROCHLORIDE
     Route: 042
     Dates: start: 20230505, end: 20230507
  24. VITAMIN B6 [Concomitant]
     Active Substance: PYRIDOXINE HYDROCHLORIDE
     Route: 042
     Dates: start: 20230816, end: 20230817
  25. VITAMIN B6 [Concomitant]
     Active Substance: PYRIDOXINE HYDROCHLORIDE
     Route: 042
     Dates: start: 20230630, end: 20230701
  26. VITAMIN B6 [Concomitant]
     Active Substance: PYRIDOXINE HYDROCHLORIDE
     Route: 050
     Dates: start: 20211220, end: 20211220
  27. VITAMIN B6 [Concomitant]
     Active Substance: PYRIDOXINE HYDROCHLORIDE
     Route: 050
     Dates: start: 20220310, end: 20220313
  28. MONTMORILLONITE [Concomitant]
     Active Substance: MONTMORILLONITE
     Indication: Diarrhoea
     Dosage: OTHER
     Route: 048
     Dates: start: 20230112, end: 20230113
  29. ZOLEDRONIC ACID [Concomitant]
     Active Substance: ZOLEDRONIC ACID
     Indication: Metastases to bone
     Route: 050
     Dates: start: 20230111, end: 20230312
  30. ZOLEDRONIC ACID [Concomitant]
     Active Substance: ZOLEDRONIC ACID
     Route: 042
     Dates: start: 20221222, end: 20221222
  31. ZOLEDRONIC ACID [Concomitant]
     Active Substance: ZOLEDRONIC ACID
     Route: 042
     Dates: start: 20230111, end: 20230111
  32. ZOLEDRONIC ACID [Concomitant]
     Active Substance: ZOLEDRONIC ACID
     Route: 042
     Dates: start: 20230212, end: 20230212
  33. ZOLEDRONIC ACID [Concomitant]
     Active Substance: ZOLEDRONIC ACID
     Route: 042
     Dates: start: 20230312, end: 20230312
  34. ZOLEDRONIC ACID [Concomitant]
     Active Substance: ZOLEDRONIC ACID
     Route: 042
     Dates: start: 20230406, end: 20230406
  35. ZOLEDRONIC ACID [Concomitant]
     Active Substance: ZOLEDRONIC ACID
     Route: 042
     Dates: start: 20230506, end: 20230506
  36. ZOLEDRONIC ACID [Concomitant]
     Active Substance: ZOLEDRONIC ACID
     Route: 042
     Dates: start: 20230701, end: 20230701
  37. ZOLEDRONIC ACID [Concomitant]
     Active Substance: ZOLEDRONIC ACID
     Dates: start: 20230817, end: 20230817
  38. ZOLEDRONIC ACID [Concomitant]
     Active Substance: ZOLEDRONIC ACID
     Route: 050
     Dates: start: 20211219, end: 20211219
  39. ZOLEDRONIC ACID [Concomitant]
     Active Substance: ZOLEDRONIC ACID
     Route: 050
     Dates: start: 20220409, end: 20220409
  40. ZOLEDRONIC ACID [Concomitant]
     Active Substance: ZOLEDRONIC ACID
     Route: 050
     Dates: start: 20220507, end: 20220507
  41. ZOLEDRONIC ACID [Concomitant]
     Active Substance: ZOLEDRONIC ACID
     Route: 050
     Dates: start: 20220507, end: 20220602
  42. ZOLEDRONIC ACID [Concomitant]
     Active Substance: ZOLEDRONIC ACID
     Route: 050
     Dates: start: 20220114, end: 20220114
  43. ZOLEDRONIC ACID [Concomitant]
     Active Substance: ZOLEDRONIC ACID
     Route: 050
     Dates: start: 20220210, end: 20220210
  44. ZOLEDRONIC ACID [Concomitant]
     Active Substance: ZOLEDRONIC ACID
     Route: 050
     Dates: start: 20220311, end: 20220311
  45. COMPOUND KUSHEN INJECTION [Concomitant]
     Route: 050
     Dates: start: 20230110, end: 20230112
  46. COMPOUND KUSHEN INJECTION [Concomitant]
     Route: 050
     Dates: start: 20230211, end: 20230211
  47. COMPOUND KUSHEN INJECTION [Concomitant]
     Route: 050
     Dates: start: 20230213, end: 20230213
  48. COMPOUND KUSHEN INJECTION [Concomitant]
     Route: 050
     Dates: start: 20230311, end: 20230311
  49. COMPOUND KUSHEN INJECTION [Concomitant]
     Route: 050
     Dates: start: 20230313, end: 20230313
  50. COMPOUND KUSHEN INJECTION [Concomitant]
     Route: 050
     Dates: start: 20220407, end: 20220410
  51. DIETARY SUPPLEMENT\OPHIOCORDYCEPS SINENSIS [Concomitant]
     Active Substance: DIETARY SUPPLEMENT\OPHIOCORDYCEPS SINENSIS
     Route: 048
     Dates: start: 20230111
  52. BERBERINE [Concomitant]
     Active Substance: BERBERINE
     Indication: Diarrhoea
     Route: 048
     Dates: start: 20230817, end: 20230818
  53. BERBERINE [Concomitant]
     Active Substance: BERBERINE
     Route: 048
     Dates: start: 20220729, end: 20220731
  54. COMPOUND MATRINE (UNK INGREDIENTS) [Concomitant]
     Route: 042
     Dates: start: 20230404, end: 20230407
  55. COMPOUND MATRINE (UNK INGREDIENTS) [Concomitant]
     Route: 042
     Dates: start: 20230506, end: 20230507
  56. COMPOUND MATRINE (UNK INGREDIENTS) [Concomitant]
     Route: 042
     Dates: start: 20230701, end: 20230702
  57. COMPOUND MATRINE (UNK INGREDIENTS) [Concomitant]
     Route: 042
     Dates: start: 20230816, end: 20230817
  58. COMPOUND MATRINE (UNK INGREDIENTS) [Concomitant]
     Route: 050
     Dates: start: 20220211, end: 20220212
  59. DEXAMETHASONE SODIUM PHOSPHATE [Concomitant]
     Active Substance: DEXAMETHASONE PHOSPHATE\DEXAMETHASONE SODIUM PHOSPHATE
     Indication: Pyrexia
     Route: 050
     Dates: start: 20211220, end: 20211220
  60. ACETYLCYSTEINE [Concomitant]
     Active Substance: ACETYLCYSTEINE
     Route: 048
     Dates: start: 20220114, end: 20220116
  61. MANNATIDE [Concomitant]
     Route: 050
     Dates: start: 20220603, end: 20220604
  62. POTASSIUM CHLORIDE [Concomitant]
     Active Substance: POTASSIUM CHLORIDE
     Indication: Hypokalaemia
     Route: 048
     Dates: start: 20220726, end: 20220731
  63. POTASSIUM CHLORIDE [Concomitant]
     Active Substance: POTASSIUM CHLORIDE
     Route: 048
     Dates: start: 20211221, end: 20211222
  64. POTASSIUM CHLORIDE [Concomitant]
     Active Substance: POTASSIUM CHLORIDE
     Route: 050
     Dates: start: 20211221, end: 20211222

REACTIONS (1)
  - Blood creatinine increased [Not Recovered/Not Resolved]

NARRATIVE: CASE EVENT DATE: 20221021
